FAERS Safety Report 18724303 (Version 1)
Quarter: 2021Q1

REPORT INFORMATION
  Report Type: Spontaneous
  Country: US (occurrence: US)
  Receive Date: 20210110
  Receipt Date: 20210110
  Transmission Date: 20210419
  Serious: No
  Sender: FDA-Public Use
  Company Number: None

PATIENT
  Age: 39 Year
  Sex: Female
  Weight: 81 kg

DRUGS (4)
  1. NURTEC ODT [Suspect]
     Active Substance: RIMEGEPANT SULFATE
     Indication: MIGRAINE
     Dosage: ?          QUANTITY:8 TABLET(S);?
     Route: 060
     Dates: start: 20200827, end: 20201118
  2. VITAMIN D [Concomitant]
     Active Substance: VITAMIN D NOS
  3. ESTRADIOL. [Concomitant]
     Active Substance: ESTRADIOL
  4. SYNTHROID [Concomitant]
     Active Substance: LEVOTHYROXINE SODIUM

REACTIONS (1)
  - Liver injury [None]

NARRATIVE: CASE EVENT DATE: 20201118
